FAERS Safety Report 8850145 (Version 2)
Quarter: 2012Q4

REPORT INFORMATION
  Report Type: 
  Country: US (occurrence: US)
  Receive Date: 20121019
  Receipt Date: 20121101
  Transmission Date: 20130627
  Serious: Yes (Other)
  Sender: FDA-Public Use
  Company Number: US-GLAXOSMITHKLINE-A0997007A

PATIENT
  Age: 68 Year
  Sex: Male

DRUGS (10)
  1. ADVAIR [Suspect]
     Indication: CHRONIC OBSTRUCTIVE PULMONARY DISEASE
     Dosage: 1PUFF Twice per day
     Route: 055
  2. ENDOCET [Concomitant]
  3. SPIRIVA [Concomitant]
  4. ASPIRIN [Concomitant]
  5. METOPROLOL [Concomitant]
  6. ATORVASTATIN [Concomitant]
  7. AVODART [Concomitant]
  8. TAMSULOSIN [Concomitant]
  9. OXYCONTIN [Concomitant]
  10. ALPRAZOLAM [Concomitant]

REACTIONS (19)
  - Lung neoplasm malignant [Not Recovered/Not Resolved]
  - Prostate cancer [Not Recovered/Not Resolved]
  - Lung infection [Not Recovered/Not Resolved]
  - Pulmonary mycosis [Unknown]
  - Pulmonary mass [Not Recovered/Not Resolved]
  - Onychomycosis [Not Recovered/Not Resolved]
  - Oral candidiasis [Recovered/Resolved]
  - Throat irritation [Not Recovered/Not Resolved]
  - Dysphonia [Not Recovered/Not Resolved]
  - Productive cough [Not Recovered/Not Resolved]
  - Headache [Not Recovered/Not Resolved]
  - Myalgia [Not Recovered/Not Resolved]
  - Bone pain [Not Recovered/Not Resolved]
  - Dysphagia [Recovered/Resolved]
  - Dyspnoea [Recovered/Resolved]
  - Stress [Not Recovered/Not Resolved]
  - Gait disturbance [Recovering/Resolving]
  - Drug administration error [Recovered/Resolved]
  - Biopsy [Recovered/Resolved]
